FAERS Safety Report 18182420 (Version 2)
Quarter: 2021Q2

REPORT INFORMATION
  Report Type: Report from Study
  Country: CH (occurrence: FR)
  Receive Date: 20200821
  Receipt Date: 20210618
  Transmission Date: 20210717
  Serious: Yes (Hospitalization)
  Sender: FDA-Public Use
  Company Number: NVSC2020FR222304

PATIENT
  Sex: Male

DRUGS (1)
  1. BYL719 [Suspect]
     Active Substance: ALPELISIB
     Indication: PIK3CA RELATED OVERGROWTH SPECTRUM
     Dosage: UNK
     Route: 065
     Dates: start: 20160111

REACTIONS (1)
  - Dyspnoea [Unknown]
